FAERS Safety Report 8774233 (Version 1)
Quarter: 2012Q4

REPORT INFORMATION
  Report Type: 
  Country: IT (occurrence: IT)
  Receive Date: 20120907
  Receipt Date: 20120907
  Transmission Date: 20130627
  Serious: Yes (Hospitalization)
  Sender: FDA-Public Use
  Company Number: IT-CUBIST-2012S1000742

PATIENT
  Age: 74 Year
  Sex: Male

DRUGS (2)
  1. CUBICIN [Suspect]
     Indication: ENDOCARDITIS
     Route: 042
     Dates: start: 20120723, end: 20120728
  2. ERTAPENEM [Suspect]
     Indication: INFECTION
     Route: 042
     Dates: start: 20120721, end: 20120728

REACTIONS (4)
  - Haemorrhage [Recovering/Resolving]
  - Generalised erythema [Recovering/Resolving]
  - Renal failure acute [Recovering/Resolving]
  - Eosinophilia [Recovering/Resolving]
